FAERS Safety Report 9649030 (Version 1)
Quarter: 2013Q4

REPORT INFORMATION
  Report Type: Spontaneous
  Country: US (occurrence: US)
  Receive Date: 20131028
  Receipt Date: 20131028
  Transmission Date: 20140711
  Serious: Yes (Other)
  Sender: FDA-Public Use
  Company Number: US-ABBVIE-13P-163-1159988-00

PATIENT
  Age: 62 Year
  Sex: Female

DRUGS (2)
  1. ACETAMINOPHEN\HYDROCODONE [Suspect]
     Indication: MYALGIA
     Dosage: 6-8 TABS PER DAY
  2. TACROLIMUS [Interacting]
     Indication: PRODUCT USED FOR UNKNOWN INDICATION

REACTIONS (3)
  - Leukoencephalopathy [Recovering/Resolving]
  - Drug level increased [Unknown]
  - Drug interaction [Unknown]
